FAERS Safety Report 11331959 (Version 1)
Quarter: 2015Q3

REPORT INFORMATION
  Report Type: Spontaneous
  Country: US (occurrence: US)
  Receive Date: 20150803
  Receipt Date: 20150803
  Transmission Date: 20151125
  Serious: No
  Sender: FDA-Public Use
  Company Number: US-ELI_LILLY_AND_COMPANY-US200807002182

PATIENT
  Age: 7 Year
  Sex: Male

DRUGS (4)
  1. ADDERALL [Concomitant]
     Active Substance: AMPHETAMINE ASPARTATE\AMPHETAMINE SULFATE\DEXTROAMPHETAMINE SACCHARATE\DEXTROAMPHETAMINE SULFATE
  2. ZYPREXA [Suspect]
     Active Substance: OLANZAPINE
     Indication: BIPOLAR DISORDER
     Dosage: 20 MG, UNK
  3. ZYPREXA [Suspect]
     Active Substance: OLANZAPINE
     Dosage: 5 MG, UNK
     Dates: start: 200801
  4. LITHIUM. [Concomitant]
     Active Substance: LITHIUM

REACTIONS (9)
  - Somnolence [Unknown]
  - Drug ineffective [Unknown]
  - Cough [Unknown]
  - Drooling [Unknown]
  - Confusional state [Unknown]
  - Vomiting [Unknown]
  - Increased appetite [Unknown]
  - Abnormal behaviour [Unknown]
  - Nasal congestion [Unknown]
